FAERS Safety Report 21236074 (Version 1)
Quarter: 2022Q3

REPORT INFORMATION
  Report Type: Other
  Country: IN (occurrence: None)
  Receive Date: 20220822
  Receipt Date: 20220822
  Transmission Date: 20221026
  Serious: Yes (Other)
  Sender: FDA-Public Use
  Company Number: IN-Encube-000202

PATIENT
  Age: 29 Year
  Sex: Male

DRUGS (1)
  1. TRIAMCINOLONE ACETONIDE [Suspect]
     Active Substance: TRIAMCINOLONE ACETONIDE
     Indication: Alopecia
     Dosage: 20 TO 25 INJECTIONS  DURING EACH SITTING
     Dates: start: 202011

REACTIONS (1)
  - Mycobacterium abscessus infection [Recovered/Resolved]

NARRATIVE: CASE EVENT DATE: 20210101
